FAERS Safety Report 6344138-0 (Version None)
Quarter: 2009Q3

REPORT INFORMATION
  Report Type: 
  Country: None (occurrence: None)
  Receive Date: 20090908
  Receipt Date: 20090902
  Transmission Date: 20100115
  Serious: Yes (Death)
  Sender: FDA-Public Use
  Company Number: AU-SANOFI-SYNTHELABO-A01200909137

PATIENT
  Age: 62 Year
  Sex: Female

DRUGS (6)
  1. METOCLOPRAMIDE [Suspect]
     Indication: DRUG USE FOR UNKNOWN INDICATION
     Dosage: UNK
     Route: 048
     Dates: start: 20090721
  2. DEXAMETHASONE [Suspect]
     Indication: DRUG USE FOR UNKNOWN INDICATION
     Dosage: UNK
     Route: 065
     Dates: start: 20090721, end: 20090721
  3. LEUCOVORIN CALCIUM [Suspect]
     Indication: DRUG USE FOR UNKNOWN INDICATION
     Dosage: UNK
     Route: 065
     Dates: start: 20090721, end: 20090721
  4. KYTRIL [Suspect]
     Indication: DRUG USE FOR UNKNOWN INDICATION
     Dosage: UNK
     Route: 065
     Dates: start: 20090721, end: 20090721
  5. OXALIPLATIN [Suspect]
     Indication: DRUG USE FOR UNKNOWN INDICATION
     Dosage: UNK
     Route: 041
     Dates: start: 20090721, end: 20090721
  6. FLUOROURACIL [Suspect]
     Indication: COLON CANCER
     Dosage: 720 MG
     Route: 042

REACTIONS (2)
  - DYSTONIA [None]
  - MYOCARDIAL INFARCTION [None]
